FAERS Safety Report 17662446 (Version 2)
Quarter: 2020Q4

REPORT INFORMATION
  Report Type: Spontaneous
  Country: JP (occurrence: JP)
  Receive Date: 20200413
  Receipt Date: 20201230
  Transmission Date: 20210113
  Serious: Yes (Hospitalization, Other)
  Sender: FDA-Public Use
  Company Number: JP-SA-2020SA095148

PATIENT

DRUGS (3)
  1. FEXOFENADINE HYDROCHLORIDE. [Concomitant]
     Active Substance: FEXOFENADINE HYDROCHLORIDE
     Dosage: UNK
     Dates: start: 2019
  2. XYZAL [Suspect]
     Active Substance: LEVOCETIRIZINE DIHYDROCHLORIDE
     Indication: URTICARIA
     Dosage: 5 MG, QD
     Route: 048
     Dates: start: 20200309, end: 20200320
  3. RESTAMIN KOWA [Concomitant]
     Indication: PRURITUS
     Dosage: ONCE OR TWICE DAILY
     Dates: start: 20200309

REACTIONS (6)
  - Bile duct cancer [Not Recovered/Not Resolved]
  - Hepatic enzyme increased [Unknown]
  - Jaundice [Unknown]
  - Therapy cessation [Unknown]
  - Taste disorder [Unknown]
  - Decreased appetite [Unknown]

NARRATIVE: CASE EVENT DATE: 20200309
